FAERS Safety Report 8485859-3 (Version None)
Quarter: 2012Q3

REPORT INFORMATION
  Report Type: 
  Country: None (occurrence: None)
  Receive Date: 20120703
  Receipt Date: 20120627
  Transmission Date: 20120928
  Serious: Yes (Hospitalization, Other)
  Sender: FDA-Public Use
  Company Number: PHHY2012ES054969

PATIENT
  Age: 88 Year
  Sex: Male

DRUGS (3)
  1. SINTROM [Interacting]
     Indication: ATRIAL FIBRILLATION
     Route: 048
     Dates: start: 20080701, end: 20111027
  2. SIMVASTATIN [Suspect]
     Indication: HYPERLIPIDAEMIA
     Dosage: 20 MG, PER DAY
     Dates: start: 20080701, end: 20111027
  3. SERTRALINE HYDROCHLORIDE [Interacting]
     Indication: DEPRESSION
     Dosage: 50 MG, PER DAY
     Route: 048
     Dates: start: 20110701, end: 20111027

REACTIONS (11)
  - NERVOUS SYSTEM DISORDER [None]
  - GASTRITIS [None]
  - UPPER GASTROINTESTINAL HAEMORRHAGE [None]
  - BLOOD POTASSIUM DECREASED [None]
  - HAEMATOCRIT DECREASED [None]
  - MELAENA [None]
  - DUODENITIS [None]
  - TACHYCARDIA [None]
  - DRUG INTERACTION [None]
  - BLOOD SODIUM INCREASED [None]
  - HYPOTENSION [None]
